FAERS Safety Report 4449333-3 (Version None)
Quarter: 2004Q3

REPORT INFORMATION
  Report Type: 
  Country: None (occurrence: None)
  Receive Date: 20040910
  Receipt Date: 20040831
  Transmission Date: 20050211
  Serious: Yes (Life-Threatening, Hospitalization)
  Sender: FDA-Public Use
  Company Number: 2004231322US

PATIENT
  Age: 16 Year
  Sex: Female
  Weight: 73.5 kg

DRUGS (1)
  1. DEPO-PROVERA [Suspect]
     Indication: CONTRACEPTION
     Dosage: 1ST INJECTION/EVERY THREE MONTHS, INTRAMUSCULAR
     Route: 030
     Dates: start: 20020601, end: 20020601

REACTIONS (1)
  - APPENDICITIS PERFORATED [None]
